FAERS Safety Report 22395991 (Version 1)
Quarter: 2023Q2

REPORT INFORMATION
  Report Type: Spontaneous
  Country: US (occurrence: US)
  Receive Date: 20230601
  Receipt Date: 20230601
  Transmission Date: 20230721
  Serious: No
  Sender: FDA-Public Use
  Company Number: US-APIL-2310278US

PATIENT
  Sex: Male

DRUGS (2)
  1. QULIPTA [Suspect]
     Active Substance: ATOGEPANT
     Indication: Product used for unknown indication
     Dosage: 30 MG
     Dates: start: 20221128, end: 202212
  2. QULIPTA [Suspect]
     Active Substance: ATOGEPANT
     Dosage: UNK MG
     Dates: start: 20221205

REACTIONS (1)
  - Headache [Unknown]
